FAERS Safety Report 8471961-9 (Version None)
Quarter: 2012Q2

REPORT INFORMATION
  Report Type: 
  Country: None (occurrence: None)
  Receive Date: 20120627
  Receipt Date: 20120619
  Transmission Date: 20120825
  Serious: Yes (Hospitalization)
  Sender: FDA-Public Use
  Company Number: US-BAYER-2012-062160

PATIENT
  Age: 14 Year
  Sex: Female
  Weight: 44.444 kg

DRUGS (4)
  1. DROSPIRENONE AND ETHINYL ESTRADIOL [Suspect]
     Indication: ACNE
     Dosage: UNK
     Dates: start: 20090813, end: 20091001
  2. DROSPIRENONE AND ETHINYL ESTRADIOL [Suspect]
     Indication: PREMENSTRUAL SYNDROME
  3. CENTRALLY ACTING SYMPATHOMIMETICS [Concomitant]
     Indication: ATTENTION DEFICIT/HYPERACTIVITY DISORDER
  4. SINGULAIR [Concomitant]
     Indication: ASTHMA

REACTIONS (7)
  - UNEVALUABLE EVENT [None]
  - JOINT STIFFNESS [None]
  - DEEP VEIN THROMBOSIS [None]
  - ANXIETY [None]
  - ARTHRALGIA [None]
  - FATIGUE [None]
  - MENTAL DISORDER [None]
